FAERS Safety Report 9788735 (Version 1)
Quarter: 2013Q4

REPORT INFORMATION
  Report Type: Spontaneous
  Country: DK (occurrence: IT)
  Receive Date: 20131230
  Receipt Date: 20131230
  Transmission Date: 20140711
  Serious: Yes (Hospitalization)
  Sender: FDA-Public Use
  Company Number: IT-FRI-1000052490

PATIENT
  Age: 73 Year
  Sex: Male

DRUGS (1)
  1. ESCITALOPRAM ORAL SOLUTION [Suspect]
     Indication: ABNORMAL BEHAVIOUR
     Dosage: 5 MG
     Route: 048
     Dates: start: 20111201, end: 20131128

REACTIONS (5)
  - Rhabdomyolysis [Recovering/Resolving]
  - Confusional state [Recovering/Resolving]
  - Hyperpyrexia [Recovering/Resolving]
  - Tremor [Recovering/Resolving]
  - Off label use [Unknown]
